FAERS Safety Report 20217153 (Version 2)
Quarter: 2022Q4

REPORT INFORMATION
  Report Type: Spontaneous
  Country: US (occurrence: US)
  Receive Date: 20211222
  Receipt Date: 20221116
  Transmission Date: 20230112
  Serious: Yes (Other)
  Sender: FDA-Public Use
  Company Number: US-MLMSERVICE-20211202-3249297-1

PATIENT
  Age: 59 Year
  Sex: Male

DRUGS (2)
  1. GEMCITABINE HYDROCHLORIDE [Suspect]
     Active Substance: GEMCITABINE HYDROCHLORIDE
     Indication: Gallbladder adenocarcinoma
     Dosage: UNK, SYSTEMIC THERAPY
  2. CISPLATIN [Suspect]
     Active Substance: CISPLATIN
     Indication: Gallbladder adenocarcinoma
     Dosage: UNK, SYSTEMIC CHEMOTHERAPY

REACTIONS (4)
  - Neuropathy peripheral [Unknown]
  - Cholangitis [Unknown]
  - Liver abscess [Unknown]
  - Bacteraemia [Unknown]
